FAERS Safety Report 7785048-1 (Version None)
Quarter: 2011Q3

REPORT INFORMATION
  Report Type: 
  Country: None (occurrence: None)
  Receive Date: 20110929
  Receipt Date: 20110915
  Transmission Date: 20111222
  Serious: Yes (Other)
  Sender: FDA-Public Use
  Company Number: FR-BIOGENIDEC-2011BI034659

PATIENT
  Age: 28 Year
  Sex: Female

DRUGS (8)
  1. ZYPREXA [Concomitant]
  2. ACETAMINOPHEN AND CODEINE PHOSPHATE [Concomitant]
     Dates: start: 20110801
  3. LEVOCARNIL [Concomitant]
     Indication: FATIGUE
     Dates: start: 20110501
  4. LYRICA [Concomitant]
     Indication: NEURALGIA
     Dates: start: 20090101
  5. ACETAMINOPHEN AND TRAMADOL HCL [Concomitant]
     Dates: start: 20110501, end: 20110801
  6. VESICARE [Concomitant]
     Dates: start: 20110201, end: 20110801
  7. TYSABRI [Suspect]
     Indication: MULTIPLE SCLEROSIS
     Route: 042
     Dates: start: 20090513
  8. CERIS [Concomitant]
     Indication: BLADDER DISORDER
     Dates: start: 20090101

REACTIONS (4)
  - APHASIA [None]
  - EPILEPSY [None]
  - FUNGAL INFECTION [None]
  - SENSORY DISTURBANCE [None]
